FAERS Safety Report 4812836-3 (Version None)
Quarter: 2005Q4

REPORT INFORMATION
  Report Type: 
  Country: None (occurrence: None)
  Receive Date: 20051028
  Receipt Date: 20041123
  Transmission Date: 20060501
  Serious: No
  Sender: FDA-Public Use
  Company Number: US-GLAXOSMITHKLINE-A0535024A

PATIENT
  Age: 12 Year
  Sex: Male

DRUGS (2)
  1. ADVAIR DISKUS 100/50 [Suspect]
     Indication: ASTHMA
     Route: 055
     Dates: start: 20041013, end: 20041022
  2. NO CONCURRENT MEDICATION [Concomitant]

REACTIONS (5)
  - ANXIETY [None]
  - FATIGUE [None]
  - GINGIVAL BLEEDING [None]
  - PALPITATIONS [None]
  - PANIC ATTACK [None]
